FAERS Safety Report 6563132-8 (Version None)
Quarter: 2010Q1

REPORT INFORMATION
  Report Type: 
  Country: None (occurrence: None)
  Receive Date: 20100130
  Receipt Date: 20091203
  Transmission Date: 20100710
  Serious: No
  Sender: FDA-Public Use
  Company Number: US-ABBOTT-09P-163-0612123-00

PATIENT
  Sex: Male
  Weight: 79.45 kg

DRUGS (2)
  1. HUMIRA [Suspect]
     Indication: CROHN'S DISEASE
     Dosage: 80MG LOADING DOSE/DAY 15
     Dates: start: 20091119
  2. HUMIRA [Suspect]
     Dosage: 160MG LOADING DOSE
     Dates: start: 20091105, end: 20091105

REACTIONS (1)
  - BLOOD PRESSURE INCREASED [None]
